FAERS Safety Report 4323812-1 (Version None)
Quarter: 2004Q1

REPORT INFORMATION
  Report Type: 
  Country: None (occurrence: None)
  Receive Date: 20040324
  Receipt Date: 20040324
  Transmission Date: 20041129
  Serious: Yes (Other)
  Sender: FDA-Public Use
  Company Number: None

PATIENT
  Sex: Female
  Weight: 81.6475 kg

DRUGS (2)
  1. VANCOMYCIN [Suspect]
     Indication: BREAST ABSCESS
     Dosage: 1.25 GM IV Q 12H
     Route: 042
     Dates: start: 20040310, end: 20040320
  2. CLINDAMYCIN [Suspect]
     Indication: BREAST ABSCESS
     Dosage: 900 MG IV Q 8 H
     Route: 042
     Dates: start: 20040310, end: 20040320

REACTIONS (2)
  - PYREXIA [None]
  - RASH [None]
